FAERS Safety Report 26126926 (Version 1)
Quarter: 2025Q4

REPORT INFORMATION
  Report Type: Spontaneous
  Country: US (occurrence: US)
  Receive Date: 20251205
  Receipt Date: 20251205
  Transmission Date: 20260118
  Serious: No
  Sender: NOVO NORDISK
  Company Number: US-NOVOPROD-1384123

PATIENT
  Sex: Male

DRUGS (1)
  1. NOVOLIN 70/30 [Suspect]
     Active Substance: INSULIN HUMAN
     Indication: Product used for unknown indication
     Dosage: UNK
     Route: 058
     Dates: start: 2023

REACTIONS (12)
  - Pollakiuria [Unknown]
  - Dehydration [Unknown]
  - Palpitations [Unknown]
  - Weight decreased [Unknown]
  - Irritability [Unknown]
  - Arthralgia [Unknown]
  - Pain in extremity [Unknown]
  - Diabetic neuropathy [Unknown]
  - Asthenia [Unknown]
  - Hyperhidrosis [Unknown]
  - Fatigue [Unknown]
  - Abdominal pain upper [Unknown]
